FAERS Safety Report 7626554-X (Version None)
Quarter: 2011Q3

REPORT INFORMATION
  Report Type: 
  Country: None (occurrence: None)
  Receive Date: 20110721
  Receipt Date: 20110719
  Transmission Date: 20111222
  Serious: Yes (Hospitalization)
  Sender: FDA-Public Use
  Company Number: US-GLAXOSMITHKLINE-A0937377A

PATIENT

DRUGS (3)
  1. TACROLIMUS [Concomitant]
  2. ZOSYN [Concomitant]
  3. ELTROMBOPAG [Suspect]
     Indication: NEOPLASM MALIGNANT
     Dosage: 300MG PER DAY
     Route: 048
     Dates: start: 20110620, end: 20110713

REACTIONS (1)
  - RENAL FAILURE ACUTE [None]
